FAERS Safety Report 9723354 (Version 1)
Quarter: 2013Q4

REPORT INFORMATION
  Report Type: Spontaneous
  Country: US (occurrence: US)
  Receive Date: 20131202
  Receipt Date: 20131202
  Transmission Date: 20140711
  Serious: Yes (Hospitalization)
  Sender: FDA-Public Use
  Company Number: US-GLAXOSMITHKLINE-A1020511A

PATIENT
  Age: 77 Year
  Sex: Female

DRUGS (1)
  1. FLOVENT [Suspect]
     Indication: EMPHYSEMA
     Route: 055

REACTIONS (1)
  - Nasopharyngitis [Unknown]
